FAERS Safety Report 7245537-5 (Version None)
Quarter: 2011Q1

REPORT INFORMATION
  Report Type: 
  Country: None (occurrence: None)
  Receive Date: 20110126
  Receipt Date: 20101215
  Transmission Date: 20110831
  Serious: Yes (Death, Hospitalization, Other)
  Sender: FDA-Public Use
  Company Number: US-BAXTER-2010BH006506

PATIENT
  Age: 75 Year
  Sex: Female
  Weight: 68 kg

DRUGS (34)
  1. ZONEGRAN [Concomitant]
     Indication: PRODUCT USED FOR UNKNOWN INDICATION
     Route: 048
  2. XOPENEX [Concomitant]
     Indication: PRODUCT USED FOR UNKNOWN INDICATION
     Route: 055
  3. MULTI-VITAMINS [Concomitant]
     Indication: PRODUCT USED FOR UNKNOWN INDICATION
     Route: 048
  4. HEPARIN SODIUM INJECTION [Suspect]
     Indication: AORTIC ANEURYSM REPAIR
     Route: 040
     Dates: start: 20080213, end: 20080213
  5. COENZYME Q10 [Concomitant]
     Indication: PRODUCT USED FOR UNKNOWN INDICATION
     Route: 048
  6. DILAUDID [Concomitant]
     Indication: PAIN
     Route: 042
  7. TYLENOL-500 [Concomitant]
     Indication: PRODUCT USED FOR UNKNOWN INDICATION
     Route: 048
  8. TUMS [Concomitant]
     Indication: PRODUCT USED FOR UNKNOWN INDICATION
     Route: 048
  9. NOVOLOG [Concomitant]
     Indication: DIABETES MELLITUS
     Route: 042
  10. FENTANYL [Concomitant]
     Indication: PRODUCT USED FOR UNKNOWN INDICATION
     Route: 042
  11. FISH OIL [Concomitant]
     Indication: PRODUCT USED FOR UNKNOWN INDICATION
     Route: 048
  12. HEPARIN SODIUM INJECTION [Suspect]
     Route: 042
     Dates: start: 20080213, end: 20080213
  13. PREVACID [Concomitant]
     Indication: PRODUCT USED FOR UNKNOWN INDICATION
     Route: 048
  14. R-TANNA                            /01688701/ [Concomitant]
     Indication: PRODUCT USED FOR UNKNOWN INDICATION
     Route: 048
  15. PROCARDIA [Concomitant]
     Indication: PRODUCT USED FOR UNKNOWN INDICATION
     Route: 048
  16. TRAMADOL [Concomitant]
     Indication: PRODUCT USED FOR UNKNOWN INDICATION
     Route: 065
  17. PANTOPRAZOLE [Concomitant]
     Indication: PROPHYLAXIS
     Route: 042
  18. ATROVENT [Concomitant]
     Indication: PRODUCT USED FOR UNKNOWN INDICATION
     Route: 055
  19. PRASTERONE [Concomitant]
     Indication: PRODUCT USED FOR UNKNOWN INDICATION
     Route: 065
  20. ACETYLCYSTEINE [Concomitant]
     Indication: PRODUCT USED FOR UNKNOWN INDICATION
     Route: 048
  21. HEPARIN SODIUM INJECTION [Suspect]
     Route: 042
     Dates: start: 20080213, end: 20080213
  22. VALSARTAN [Concomitant]
     Indication: PRODUCT USED FOR UNKNOWN INDICATION
     Route: 048
  23. PRAVACHOL [Concomitant]
     Indication: PRODUCT USED FOR UNKNOWN INDICATION
     Route: 048
  24. NASONEX [Concomitant]
     Indication: PRODUCT USED FOR UNKNOWN INDICATION
     Route: 045
  25. ANCEF [Concomitant]
     Indication: PRODUCT USED FOR UNKNOWN INDICATION
     Route: 042
  26. OCEAN NASAL SPRAY [Concomitant]
     Indication: PRODUCT USED FOR UNKNOWN INDICATION
     Route: 045
  27. QVAR 40 [Concomitant]
     Indication: PRODUCT USED FOR UNKNOWN INDICATION
     Route: 055
  28. HEPARIN SODIUM INJECTION [Suspect]
     Indication: ENDARTERECTOMY
     Route: 040
     Dates: start: 20080213, end: 20080213
  29. ALDACTONE [Concomitant]
     Indication: PRODUCT USED FOR UNKNOWN INDICATION
     Route: 065
  30. SINGULAIR [Concomitant]
     Indication: PRODUCT USED FOR UNKNOWN INDICATION
     Route: 048
  31. PHENERGAN [Concomitant]
     Indication: PRODUCT USED FOR UNKNOWN INDICATION
     Route: 042
  32. VITAMIN D [Concomitant]
     Indication: PRODUCT USED FOR UNKNOWN INDICATION
     Route: 048
  33. LOPRESSOR [Concomitant]
     Indication: HYPERTENSION
     Route: 042
  34. NIPRIDE [Concomitant]
     Indication: HYPERTENSION
     Route: 042

REACTIONS (13)
  - AORTIC ANEURYSM [None]
  - RENAL FAILURE ACUTE [None]
  - DEEP VEIN THROMBOSIS [None]
  - SEPSIS [None]
  - PNEUMOTHORAX [None]
  - HYPOTENSION [None]
  - RESPIRATORY DISTRESS [None]
  - PULMONARY OEDEMA [None]
  - CARDIO-RESPIRATORY ARREST [None]
  - UPPER GASTROINTESTINAL HAEMORRHAGE [None]
  - HEPARIN-INDUCED THROMBOCYTOPENIA [None]
  - ACUTE RESPIRATORY DISTRESS SYNDROME [None]
  - COAGULOPATHY [None]
